FAERS Safety Report 5660030-9 (Version None)
Quarter: 2008Q1

REPORT INFORMATION
  Report Type: 
  Country: None (occurrence: None)
  Receive Date: 20080311
  Receipt Date: 20070827
  Transmission Date: 20080703
  Serious: No
  Sender: FDA-Public Use
  Company Number: US-BAYER-200712770BCC

PATIENT
  Age: 87 Year
  Sex: Female
  Weight: 52 kg

DRUGS (6)
  1. ALEVE [Suspect]
     Indication: PROCEDURAL PAIN
     Dosage: TOTAL DAILY DOSE: 220 MG  UNIT DOSE: 220 MG
     Route: 048
     Dates: start: 20070819
  2. LASIX [Concomitant]
  3. TOPROL [Concomitant]
  4. CONCERTA [Concomitant]
  5. ZOLOFT [Concomitant]
  6. REGLAN [Concomitant]

REACTIONS (1)
  - CONSTIPATION [None]
